FAERS Safety Report 22176042 (Version 1)
Quarter: 2023Q2

REPORT INFORMATION
  Report Type: Spontaneous
  Country: US (occurrence: US)
  Receive Date: 20230405
  Receipt Date: 20230405
  Transmission Date: 20230722
  Serious: No
  Sender: FDA-Public Use
  Company Number: US-AMNEAL PHARMACEUTICALS-2022-AMRX-02482

PATIENT
  Age: 22 Year
  Sex: Male

DRUGS (1)
  1. DEXTROAMPHET SACCHARAT, AMPHET ASPARTATE, DEXTROAMPHET SULFATE AND AMP [Suspect]
     Active Substance: AMPHETAMINE ASPARTATE\AMPHETAMINE ASPARTATE MONOHYDRATE\AMPHETAMINE SULFATE\DEXTROAMPHETAMINE SACCHA
     Indication: Attention deficit hyperactivity disorder
     Dosage: UNK
     Route: 065

REACTIONS (11)
  - Lethargy [Unknown]
  - Binge eating [Unknown]
  - Hot flush [Unknown]
  - Irritability [Unknown]
  - Heart rate increased [Unknown]
  - Hyperhidrosis [Unknown]
  - Somnolence [Unknown]
  - Headache [Unknown]
  - Decreased appetite [Unknown]
  - Drug effect less than expected [Unknown]
  - Therapeutic response shortened [Unknown]
